FAERS Safety Report 4279141-8 (Version None)
Quarter: 2004Q1

REPORT INFORMATION
  Report Type: 
  Country: None (occurrence: None)
  Receive Date: 20040127
  Receipt Date: 20040116
  Transmission Date: 20041129
  Serious: Yes (Death, Hospitalization)
  Sender: FDA-Public Use
  Company Number: PHBS2004ES01044

PATIENT
  Age: 32 Year
  Sex: Female

DRUGS (2)
  1. CYCLOSPORINE [Suspect]
     Indication: RENAL TRANSPLANT
     Route: 065
  2. PREDNISONE [Suspect]
     Indication: RENAL TRANSPLANT
     Route: 065

REACTIONS (5)
  - ABDOMINAL PAIN [None]
  - CAECITIS [None]
  - LEUKOCYTOSIS [None]
  - PYREXIA [None]
  - SEPTIC SHOCK [None]
